FAERS Safety Report 4435234-3 (Version None)
Quarter: 2004Q3

REPORT INFORMATION
  Report Type: 
  Country: None (occurrence: None)
  Receive Date: 20040827
  Receipt Date: 20040728
  Transmission Date: 20050211
  Serious: Yes (Death)
  Sender: FDA-Public Use
  Company Number: JP-GLAXOSMITHKLINE-B0341134A

PATIENT
  Age: 6 Year
  Sex: Male

DRUGS (5)
  1. BECOTIDE [Suspect]
     Indication: ASTHMA
     Dosage: 50MCG FOUR TIMES PER DAY
     Route: 055
     Dates: start: 20020121, end: 20020124
  2. RINDERON [Suspect]
     Indication: ASTHMA
     Route: 048
     Dates: start: 20020115, end: 20020124
  3. ALEGYSAL [Suspect]
     Indication: ASTHMA
     Dosage: 1G TWICE PER DAY
     Route: 048
     Dates: start: 20010417, end: 20020124
  4. THEO-DUR [Suspect]
     Indication: ASTHMA
     Dosage: .4G TWICE PER DAY
     Route: 048
     Dates: start: 20010417, end: 20020124
  5. CEFZON [Suspect]
     Indication: UPPER RESPIRATORY TRACT INFECTION
     Dosage: .5G FOUR TIMES PER DAY
     Route: 048
     Dates: start: 20020118, end: 20020124

REACTIONS (8)
  - ANAPHYLACTIC SHOCK [None]
  - ASTHENIA [None]
  - CARDIAC ARREST [None]
  - CHEST PAIN [None]
  - DYSPNOEA [None]
  - PYREXIA [None]
  - UPPER RESPIRATORY TRACT INFLAMMATION [None]
  - WHEEZING [None]
